FAERS Safety Report 5775745-1 (Version None)
Quarter: 2008Q2

REPORT INFORMATION
  Report Type: 
  Country: None (occurrence: None)
  Receive Date: 20080601
  Receipt Date: 20080319
  Transmission Date: 20081010
  Serious: No
  Sender: FDA-Public Use
  Company Number: US200803004845

PATIENT
  Age: 66 Year
  Sex: Female
  Weight: 86.2 kg

DRUGS (6)
  1. BYETTA [Suspect]
     Indication: TYPE 2 DIABETES MELLITUS
     Dosage: 5 UG, 2/D, SUBCUTANEOUS
     Route: 058
     Dates: start: 20080101
  2. EXENATIDE PAN, DISPOSABLE DEVICE (EXENATIDE PEN) PEN,DISPOSABLE [Concomitant]
  3. GLIMEPIRIDE [Concomitant]
  4. FOSINOPRIL SODIUM [Concomitant]
  5. CLONIDINE [Concomitant]
  6. HYDROCHLOROTHIAZIDE [Concomitant]

REACTIONS (4)
  - ERYTHEMA [None]
  - HYPERTENSION [None]
  - OCULAR HYPERAEMIA [None]
  - WEIGHT DECREASED [None]
